FAERS Safety Report 9972663 (Version 1)
Quarter: 2014Q1

REPORT INFORMATION
  Report Type: Spontaneous
  Country: US (occurrence: US)
  Receive Date: 20140306
  Receipt Date: 20140306
  Transmission Date: 20141002
  Serious: No
  Sender: FDA-Public Use
  Company Number: US-ABBVIE-13P-163-1154355-00

PATIENT
  Age: 59 Year
  Sex: Female
  Weight: 45.85 kg

DRUGS (8)
  1. HUMIRA [Suspect]
     Indication: CROHN^S DISEASE
     Dates: start: 201308, end: 201308
  2. HUMIRA [Suspect]
     Indication: COLITIS ULCERATIVE
     Dates: start: 2013, end: 2013
  3. HUMIRA [Suspect]
     Dates: start: 2013
  4. LIPITOR [Concomitant]
     Indication: BLOOD CHOLESTEROL INCREASED
  5. NORVASC [Concomitant]
     Indication: ANGINA UNSTABLE
  6. BYSTOLIC [Concomitant]
     Indication: HYPERTENSION
  7. XANAX [Concomitant]
     Indication: ANXIETY
  8. ZANTAC [Concomitant]
     Indication: HIATUS HERNIA

REACTIONS (1)
  - Crohn^s disease [Not Recovered/Not Resolved]
